FAERS Safety Report 7369661-1 (Version None)
Quarter: 2011Q1

REPORT INFORMATION
  Report Type: 
  Country: None (occurrence: None)
  Receive Date: 20110323
  Receipt Date: 20110314
  Transmission Date: 20110831
  Serious: Yes (Hospitalization)
  Sender: FDA-Public Use
  Company Number: JP-ASTRAZENECA-2010SE56904

PATIENT
  Age: 80 Year
  Sex: Female
  Weight: 31 kg

DRUGS (9)
  1. IRESSA [Suspect]
     Indication: LUNG ADENOCARCINOMA
     Route: 048
     Dates: start: 20100427, end: 20101104
  2. MAGMITT [Concomitant]
     Indication: CONSTIPATION
     Route: 048
     Dates: start: 20100419
  3. VANCOMYCIN HYDROCHLORIDE [Concomitant]
     Indication: PNEUMONIA BACTERIAL
     Route: 042
     Dates: start: 20100423, end: 20100501
  4. VESICARE [Concomitant]
     Indication: NEUROGENIC BLADDER
     Route: 048
     Dates: start: 20100427
  5. WARFARIN [Concomitant]
     Indication: VENOUS THROMBOSIS LIMB
     Route: 048
     Dates: start: 20100429, end: 20101014
  6. ZOSYN [Concomitant]
     Indication: PNEUMONIA BACTERIAL
     Route: 042
     Dates: start: 20100423, end: 20100509
  7. TOFRANIL [Concomitant]
     Indication: NEUROGENIC BLADDER
     Route: 048
     Dates: start: 20100427
  8. SULBACTAM-AMPICILLIN [Concomitant]
     Indication: PNEUMONIA BACTERIAL
     Route: 042
     Dates: start: 20100929, end: 20101006
  9. HEPARIN SODIUM [Concomitant]
     Indication: VENOUS THROMBOSIS LIMB
     Route: 042
     Dates: start: 20100501, end: 20100509

REACTIONS (3)
  - PNEUMONIA BACTERIAL [None]
  - INTERSTITIAL LUNG DISEASE [None]
  - RASH [None]
